FAERS Safety Report 18081380 (Version 1)
Quarter: 2020Q3

REPORT INFORMATION
  Report Type: Spontaneous
  Country: US (occurrence: US)
  Receive Date: 20200728
  Receipt Date: 20200728
  Transmission Date: 20201103
  Serious: Yes (Other)
  Sender: FDA-Public Use
  Company Number: US-ASTRAZENECA-2020SE91470

PATIENT
  Age: 22012 Day
  Sex: Male
  Weight: 90.7 kg

DRUGS (13)
  1. NEXIUM [Suspect]
     Active Substance: ESOMEPRAZOLE MAGNESIUM
     Indication: GASTROOESOPHAGEAL REFLUX DISEASE
     Route: 048
  2. HUMALOG [Concomitant]
     Active Substance: INSULIN LISPRO
  3. KLONOPIN [Concomitant]
     Active Substance: CLONAZEPAM
  4. RISPERIDONE. [Concomitant]
     Active Substance: RISPERIDONE
  5. MIRTAZAPINE. [Concomitant]
     Active Substance: MIRTAZAPINE
  6. TYLENOL [Concomitant]
     Active Substance: ACETAMINOPHEN
  7. TETANUS TOXOID [Concomitant]
     Active Substance: TETANUS TOXOIDS
  8. RANITIDINE. [Concomitant]
     Active Substance: RANITIDINE
  9. LISINOPRIL. [Concomitant]
     Active Substance: LISINOPRIL
  10. PRILOSEC [Suspect]
     Active Substance: OMEPRAZOLE MAGNESIUM
     Indication: GASTROOESOPHAGEAL REFLUX DISEASE
     Route: 048
  11. LANTUS [Concomitant]
     Active Substance: INSULIN GLARGINE
  12. COLACE [Concomitant]
     Active Substance: DOCUSATE SODIUM
  13. LYRICA [Concomitant]
     Active Substance: PREGABALIN

REACTIONS (12)
  - Hepatic steatosis [Unknown]
  - Constipation [Unknown]
  - Hepatic cirrhosis [Unknown]
  - Insomnia [Unknown]
  - Hypertension [Unknown]
  - Fatty liver alcoholic [Unknown]
  - Abdominal pain [Unknown]
  - Chronic hepatitis C [Unknown]
  - Depression [Unknown]
  - Schizoaffective disorder [Unknown]
  - Anxiety disorder [Unknown]
  - Diabetes mellitus [Unknown]

NARRATIVE: CASE EVENT DATE: 20180105
